FAERS Safety Report 9563418 (Version 1)
Quarter: 2013Q1

REPORT INFORMATION
  Report Type: Spontaneous
  Country: US (occurrence: None)
  Receive Date: 20121218
  Receipt Date: 20121218
  Transmission Date: 20140127
  Serious: Yes (Other)
  Sender: FDA-Public Use
  Company Number: PHEH2012US011876

PATIENT
  Age: 65 Year
  Sex: Female

DRUGS (16)
  1. ZOMETA (ZOLEDRONATE) SOLUTION FOR INJECTION [Suspect]
     Indication: OSTEOPOROSIS PROPHYLAXIS
     Route: 042
     Dates: start: 200402, end: 201111
  2. ZOMETA (ZOLEDRONATE) SOLUTION FOR INJECTION [Suspect]
     Indication: BREAST CANCER METASTATIC
     Route: 042
     Dates: start: 200402, end: 201111
  3. HERCEPTIN (TRASTUZUMAB) [Concomitant]
  4. NUTRITION SUPPLEMENTS (NUTRITION SUPPLEMENTS) [Concomitant]
  5. BALANCED B-50 [Concomitant]
  6. ULTIMATE EYE FORMULA [Concomitant]
  7. VITAMIN D3 (COLECALCIFEROL) [Concomitant]
  8. CAL APATITE 1000 [Concomitant]
  9. GLUCOSAMINE (GLUCOSAMINE) [Concomitant]
  10. CHONDROITIN SULFATE (CHONDROITIN SULFATE) [Concomitant]
  11. OMEGA 3 (FISH OIL) [Concomitant]
  12. COQ10 (UBIDECARENONE) [Concomitant]
  13. JUICE PLUS [Concomitant]
  14. GARLIC (ALLIUM SATIVUM) [Concomitant]
  15. CINNAOMIN [Concomitant]
  16. CURCUMIN PHYTOSONE [Concomitant]

REACTIONS (8)
  - Metastases to bone [None]
  - Gingival disorder [None]
  - Gingival recession [None]
  - Tooth loss [None]
  - Tooth disorder [None]
  - Tooth discolouration [None]
  - Cough [None]
  - Arthralgia [None]
